FAERS Safety Report 9965706 (Version 1)
Quarter: 2014Q1

REPORT INFORMATION
  Report Type: Report from Study
  Country: US (occurrence: US)
  Receive Date: 20140305
  Receipt Date: 20140305
  Transmission Date: 20141002
  Serious: No
  Sender: FDA-Public Use
  Company Number: US-ABBVIE-13P-163-1125664-00

PATIENT
  Sex: Female
  Weight: 88.98 kg

DRUGS (17)
  1. HUMIRA [Suspect]
     Indication: PSORIATIC ARTHROPATHY
     Dates: start: 201211, end: 20130724
  2. ARAVA [Concomitant]
     Indication: PRODUCT USED FOR UNKNOWN INDICATION
  3. LIALDA [Concomitant]
     Indication: COLITIS ULCERATIVE
  4. INDERAL [Concomitant]
     Indication: MIGRAINE PROPHYLAXIS
  5. ZOMIG [Concomitant]
     Indication: MIGRAINE
  6. SYNTHROID [Concomitant]
     Indication: HYPOTHYROIDISM
  7. PREMARIN [Concomitant]
     Indication: POSTMENOPAUSE
  8. VAGISEN [Concomitant]
     Indication: VULVOVAGINAL DRYNESS
  9. SYSTANE [Concomitant]
     Indication: DRY EYE
  10. REFRESH [Concomitant]
     Indication: DRY EYE
  11. HALOBETASOL PROPIONATE [Concomitant]
     Indication: PSORIASIS
  12. MULTIVITAMIN [Concomitant]
     Indication: PRODUCT USED FOR UNKNOWN INDICATION
  13. CALCIUM + VITAMIN D [Concomitant]
     Indication: PRODUCT USED FOR UNKNOWN INDICATION
  14. VITAMIN D3 [Concomitant]
     Indication: PRODUCT USED FOR UNKNOWN INDICATION
  15. GLUCOSAMINE CHONDROITIN [Concomitant]
     Indication: PRODUCT USED FOR UNKNOWN INDICATION
  16. FLAXSEED OIL [Concomitant]
     Indication: PRODUCT USED FOR UNKNOWN INDICATION
  17. LUTIN [Concomitant]
     Indication: EYE DISORDER

REACTIONS (1)
  - Drug ineffective [Not Recovered/Not Resolved]
